FAERS Safety Report 21649401 (Version 9)
Quarter: 2023Q2

REPORT INFORMATION
  Report Type: Report from Study
  Country: HU (occurrence: HU)
  Receive Date: 20221128
  Receipt Date: 20230426
  Transmission Date: 20230721
  Serious: Yes (Death, Other)
  Sender: FDA-Public Use
  Company Number: HU-002147023-NVSC2022HU207925

PATIENT
  Age: 74 Year
  Sex: Female

DRUGS (3)
  1. KISQALI [Suspect]
     Active Substance: RIBOCICLIB
     Indication: Breast cancer
     Dosage: 3 DOSAGE FORM, QD (3 TABLETS) (1X)
     Route: 048
     Dates: start: 20220501
  2. KISQALI [Suspect]
     Active Substance: RIBOCICLIB
     Dosage: UNK
     Route: 048
  3. EXEMIN [Concomitant]
     Indication: Product used for unknown indication
     Dosage: 1 DOSAGE FORM (1X)
     Route: 048

REACTIONS (9)
  - Metastases to central nervous system [Fatal]
  - Cerebrovascular accident [Fatal]
  - Breast cancer [Fatal]
  - Malignant neoplasm progression [Fatal]
  - Renal impairment [Not Recovered/Not Resolved]
  - Carcinoembryonic antigen increased [Unknown]
  - Neutropenia [Recovered/Resolved]
  - Neutropenia [Recovered/Resolved]
  - Human epididymis protein 4 increased [Unknown]

NARRATIVE: CASE EVENT DATE: 20220914
